FAERS Safety Report 24539500 (Version 3)
Quarter: 2025Q1

REPORT INFORMATION
  Report Type: Spontaneous
  Country: FR (occurrence: FR)
  Receive Date: 20241023
  Receipt Date: 20250227
  Transmission Date: 20250409
  Serious: No
  Sender: SANOFI AVENTIS
  Company Number: FR-SA-2024SA263266

PATIENT
  Age: 59 Year
  Sex: Male
  Weight: 100 kg

DRUGS (2)
  1. ELOCTA [Suspect]
     Active Substance: EFMOROCTOCOG ALFA
     Indication: Factor VIII deficiency
     Dosage: 29.2 IU/KG, QOD (EVERY 48 HOURS)
     Route: 065
  2. ELOCTA [Suspect]
     Active Substance: EFMOROCTOCOG ALFA
     Indication: Factor VIII deficiency
     Dosage: 29.2 IU/KG, QOD (EVERY 48 HOURS)
     Route: 065

REACTIONS (1)
  - Poor venous access [Unknown]
